FAERS Safety Report 8223301-8 (Version None)
Quarter: 2012Q1

REPORT INFORMATION
  Report Type: 
  Country: None (occurrence: None)
  Receive Date: 20120321
  Receipt Date: 20120305
  Transmission Date: 20120608
  Serious: Yes (Other)
  Sender: FDA-Public Use
  Company Number: KR-ROCHE-1046292

PATIENT
  Age: 69 Year
  Sex: Female

DRUGS (3)
  1. BONIVA [Suspect]
     Route: 042
     Dates: start: 20120101
  2. BONIVA [Suspect]
     Indication: OSTEOPOROSIS
     Route: 042
     Dates: start: 20110701
  3. BONIVA [Suspect]
     Route: 042
     Dates: start: 20111001

REACTIONS (1)
  - THROMBOPHLEBITIS [None]
